FAERS Safety Report 8550103-5 (Version None)
Quarter: 2012Q3

REPORT INFORMATION
  Report Type: 
  Country: None (occurrence: None)
  Receive Date: 20120730
  Receipt Date: 20070828
  Transmission Date: 20120928
  Serious: Yes (Other)
  Sender: FDA-Public Use
  Company Number: CO-PFIZER INC-2012181577

PATIENT
  Age: 62 Year
  Sex: Male

DRUGS (4)
  1. ACETYLSALICYLIC ACID [Concomitant]
     Dosage: 100 MG, ONCE DAILY
     Route: 048
  2. METOPROLOL TARTRATE [Concomitant]
     Dosage: 50 MG, TWICE DAILY
     Route: 048
  3. QUINAPRIL AND HYDROCHLOROTHIAZIDE [Suspect]
     Dosage: [QUINAPRIL HCL 20 MG]/ [HYDROCHLOROTHIAZIDE 12.5 MG] ONCE DAILY
     Route: 048
  4. LIPITOR [Suspect]
     Dosage: 10 MG, ONCE DAILY

REACTIONS (1)
  - HAEMATURIA [None]
